FAERS Safety Report 13360710 (Version 2)
Quarter: 2017Q3

REPORT INFORMATION
  Report Type: Report from Study
  Country: US (occurrence: US)
  Receive Date: 20170322
  Receipt Date: 20170713
  Transmission Date: 20171127
  Serious: Yes (Hospitalization)
  Sender: FDA-Public Use
  Company Number: US-VIFOR (INTERNATIONAL) INC.-VIT-2017-02713

PATIENT
  Age: 66 Year
  Sex: Male
  Weight: 62 kg

DRUGS (2)
  1. VELTASSA [Suspect]
     Active Substance: PATIROMER
     Indication: BLOOD POTASSIUM INCREASED
     Dosage: 1 PACKET OF VELTASSA DRINKS A ONE PACKET A DAY
     Route: 048
     Dates: end: 2017
  2. VELTASSA [Suspect]
     Active Substance: PATIROMER
     Dates: start: 2017

REACTIONS (1)
  - Cerebrovascular accident [Recovered/Resolved]

NARRATIVE: CASE EVENT DATE: 201703
